FAERS Safety Report 6105382-0 (Version None)
Quarter: 2009Q1

REPORT INFORMATION
  Report Type: 
  Country: None (occurrence: None)
  Receive Date: 20090306
  Receipt Date: 20080224
  Transmission Date: 20090719
  Serious: Yes (Other)
  Sender: FDA-Public Use
  Company Number: US-PFIZER INC-2009175973

PATIENT
  Sex: Male
  Weight: 89.811 kg

DRUGS (2)
  1. ARTHROTEC [Suspect]
     Dates: start: 20060101
  2. ACETYLSALICYLIC ACID [Concomitant]

REACTIONS (1)
  - KNEE ARTHROPLASTY [None]
